FAERS Safety Report 21703947 (Version 2)
Quarter: 2023Q2

REPORT INFORMATION
  Report Type: Report from Study
  Country: US (occurrence: US)
  Receive Date: 20221209
  Receipt Date: 20230517
  Transmission Date: 20230721
  Serious: No
  Sender: FDA-Public Use
  Company Number: US-ABBVIE-4183127

PATIENT
  Age: 62 Year
  Sex: Female

DRUGS (1)
  1. HUMIRA [Suspect]
     Active Substance: ADALIMUMAB
     Indication: Psoriasis
     Dosage: DOSE:150 MG?FORM STRENGTH: 40MG?CITRATE FREE
     Route: 058
     Dates: start: 20220826

REACTIONS (10)
  - Poor quality sleep [Unknown]
  - Malaise [Unknown]
  - Asthenia [Unknown]
  - Insomnia [Unknown]
  - Headache [Unknown]
  - Skin discolouration [Unknown]
  - Sleep apnoea syndrome [Unknown]
  - Dyspnoea [Unknown]
  - Hyperphagia [Unknown]
  - Stress [Unknown]

NARRATIVE: CASE EVENT DATE: 20230417
